FAERS Safety Report 9214731 (Version 1)
Quarter: 2013Q2

REPORT INFORMATION
  Report Type: Spontaneous
  Country: US (occurrence: US)
  Receive Date: 20130405
  Receipt Date: 20130405
  Transmission Date: 20140414
  Serious: Yes (Hospitalization)
  Sender: FDA-Public Use
  Company Number: US-UCBSA-080417

PATIENT
  Age: 61 Year
  Sex: Female

DRUGS (12)
  1. VIMPAT [Suspect]
     Indication: STATUS EPILEPTICUS
     Dosage: DOSE STRENGH : 200 MG
     Route: 048
     Dates: start: 201302
  2. KEPPRA [Suspect]
     Indication: STATUS EPILEPTICUS
     Route: 048
     Dates: start: 201302
  3. LUMINAL [Concomitant]
     Route: 048
  4. DEPAKENE [Concomitant]
     Dosage: 250 MG
     Route: 048
  5. ATIVAN [Concomitant]
  6. NORVASC [Concomitant]
     Route: 048
  7. ASPIRIN [Concomitant]
     Route: 048
  8. ZOLOFT [Concomitant]
     Route: 048
  9. NEURONTIN [Concomitant]
     Dosage: 300 MG
  10. ULTRAM [Concomitant]
     Dosage: 50 MG
  11. TEGRETOL [Concomitant]
  12. TEGRETOL [Concomitant]
     Dosage: DOSE DECREASED

REACTIONS (3)
  - Sedation [Recovering/Resolving]
  - PO2 decreased [Recovering/Resolving]
  - Laceration [Recovered/Resolved]
